FAERS Safety Report 20356367 (Version 1)
Quarter: 2022Q1

REPORT INFORMATION
  Report Type: Spontaneous
  Country: US (occurrence: US)
  Receive Date: 20220120
  Receipt Date: 20220120
  Transmission Date: 20220424
  Serious: No
  Sender: FDA-Public Use
  Company Number: US-GSKCCFUS-Case-01270120_AE-74240

PATIENT
  Age: 70 Year
  Sex: Female

DRUGS (1)
  1. SOTROVIMAB [Suspect]
     Active Substance: SOTROVIMAB
     Indication: Product used for unknown indication
     Dosage: 500 MG, 62.5 MG/ML
     Route: 042
     Dates: start: 20220113

REACTIONS (6)
  - Rash [Not Recovered/Not Resolved]
  - Rash papular [Not Recovered/Not Resolved]
  - Rash erythematous [Not Recovered/Not Resolved]
  - Rash pruritic [Unknown]
  - Scratch [Unknown]
  - Urticaria [Unknown]

NARRATIVE: CASE EVENT DATE: 20220101
